FAERS Safety Report 18040004 (Version 1)
Quarter: 2020Q3

REPORT INFORMATION
  Report Type: Other
  Country: FR (occurrence: FR)
  Receive Date: 20200717
  Receipt Date: 20200717
  Transmission Date: 20201103
  Serious: Yes (Hospitalization)
  Sender: FDA-Public Use
  Company Number: FR-INCYTE CORPORATION-2020IN006614

PATIENT

DRUGS (2)
  1. HYDREA [Suspect]
     Active Substance: HYDROXYUREA
     Indication: MYELOFIBROSIS
     Dosage: 500 MG, Q48H
     Route: 048
     Dates: start: 20181102
  2. JAKAVI [Suspect]
     Active Substance: RUXOLITINIB
     Indication: MYELOFIBROSIS
     Dosage: 50 MG, QD
     Route: 048
     Dates: start: 20160603

REACTIONS (3)
  - Pachymeningitis [Recovered/Resolved]
  - Tuberculosis of central nervous system [Not Recovered/Not Resolved]
  - Metastases to meninges [Recovered/Resolved]

NARRATIVE: CASE EVENT DATE: 20200501
